FAERS Safety Report 12699156 (Version 1)
Quarter: 2016Q3

REPORT INFORMATION
  Report Type: Spontaneous
  Country: US (occurrence: US)
  Receive Date: 20160830
  Receipt Date: 20160830
  Transmission Date: 20161109
  Serious: No
  Sender: FDA-Public Use
  Company Number: US-PFIZER INC-2016360307

PATIENT
  Age: 64 Year
  Sex: Female

DRUGS (2)
  1. PREMARIN [Suspect]
     Active Substance: ESTROGENS, CONJUGATED
     Indication: BURNING SENSATION
     Dosage: 0.5 G, 1X/DAY (0.5 GRAMS VAGINALLY ONCE DAILY FOR 1 WEEK, THEN USE TWICE A WEEK THEREAFTER)
     Route: 067
  2. PREMARIN [Suspect]
     Active Substance: ESTROGENS, CONJUGATED
     Indication: PAIN

REACTIONS (2)
  - Feeling abnormal [Unknown]
  - Asthenia [Unknown]
